FAERS Safety Report 4987852-1 (Version None)
Quarter: 2006Q2

REPORT INFORMATION
  Report Type: 
  Country: None (occurrence: None)
  Receive Date: 20060424
  Receipt Date: 20060410
  Transmission Date: 20061013
  Serious: Yes (Other)
  Sender: FDA-Public Use
  Company Number: 2006BH008289

PATIENT
  Age: 2 Month
  Sex: Male
  Weight: 6 kg

DRUGS (9)
  1. ATROPINE SULFATE [Suspect]
     Indication: DRUG USE FOR UNKNOWN INDICATION
     Dosage: 0.1 MG; IV BOL
     Route: 040
  2. CHLORPHENIRAMINE MALEATE [Concomitant]
  3. PHENYLPROPANOLAMINE [Concomitant]
  4. NORMAL SALINE [Concomitant]
  5. HALOTHANE [Concomitant]
  6. NITROUS OXIDE W/ OXYGEN [Concomitant]
  7. FENTANYL [Concomitant]
  8. VECURONIUM BROMIDE [Concomitant]
  9. ISOFLURANE [Concomitant]

REACTIONS (4)
  - HEART RATE INCREASED [None]
  - LENS DISLOCATION [None]
  - TACHYCARDIA [None]
  - VITREOUS PROLAPSE [None]
